FAERS Safety Report 15978954 (Version 1)
Quarter: 2019Q1

REPORT INFORMATION
  Report Type: Report from Study
  Country: CN (occurrence: CN)
  Receive Date: 20190219
  Receipt Date: 20190219
  Transmission Date: 20190418
  Serious: Yes (Hospitalization)
  Sender: FDA-Public Use
  Company Number: CN-AMGEN-CHNCT2019019375

PATIENT
  Age: 73 Year
  Sex: Female

DRUGS (16)
  1. CINACALCET HCL [Suspect]
     Active Substance: CINACALCET HYDROCHLORIDE
     Indication: HYPERPARATHYROIDISM SECONDARY
     Dosage: 25 MG, QD
     Route: 048
     Dates: start: 20180709, end: 20180805
  2. CINACALCET HCL [Suspect]
     Active Substance: CINACALCET HYDROCHLORIDE
     Dosage: 75 MG, UNK
     Route: 048
     Dates: start: 20181010
  3. LOW-MOLECULAR-WEIGHT HEPARIN CALCIUM [Concomitant]
     Active Substance: HEPARIN CALCIUM
     Indication: HAEMODIALYSIS COMPLICATION
     Dosage: 4250 UNIT, 3 TIMES/WK
     Route: 042
     Dates: start: 20180113
  4. CALCIUM CARBONATE. [Concomitant]
     Active Substance: CALCIUM CARBONATE
     Indication: HYPOCALCAEMIA
     Dosage: 0.5 G, QD
     Route: 048
     Dates: start: 20181129
  5. HYDROTALCITE [Concomitant]
     Active Substance: HYDROTALCITE
     Indication: DUODENAL ULCER
     Dosage: 0.5 G, TID
     Route: 048
     Dates: start: 20181210
  6. CINACALCET HCL [Suspect]
     Active Substance: CINACALCET HYDROCHLORIDE
     Dosage: 50 MG, UNK
     Route: 048
     Dates: start: 20180806, end: 20181009
  7. CALCITRIOL. [Concomitant]
     Active Substance: CALCITRIOL
     Indication: HYPERPARATHYROIDISM SECONDARY
     Dosage: 0.25 UG, QD
     Route: 048
     Dates: start: 20181128
  8. METOPROLOL. [Concomitant]
     Active Substance: METOPROLOL
     Indication: HYPERTENSION
     Dosage: 12.5MG IN THE MORNING, 25MG AT NOON AND IN THE EVENING
     Route: 048
     Dates: start: 2016
  9. FOLIC ACID. [Concomitant]
     Active Substance: FOLIC ACID
     Indication: NEPHROGENIC ANAEMIA
     Dosage: 1-2 PILLS, QD
     Route: 048
  10. VITAMIN B [Concomitant]
     Active Substance: VITAMIN B
     Indication: NEPHROGENIC ANAEMIA
     Dosage: 1PILL, BID
     Route: 048
  11. VITAMIN C [Concomitant]
     Active Substance: ASCORBIC ACID
     Indication: HAEMODIALYSIS COMPLICATION
     Dosage: 2 PILLS, QD
     Route: 048
  12. LACTOSE [Concomitant]
     Active Substance: LACTOSE
     Indication: CONSTIPATION
     Dosage: 15 ML, QD
     Route: 048
     Dates: start: 20180113
  13. WARFARIN [Concomitant]
     Active Substance: WARFARIN
     Indication: ARRHYTHMIA
     Dosage: 1.5 MG, QD
     Route: 048
     Dates: start: 20181210
  14. EUCALYPTUS [Concomitant]
     Active Substance: EUCALYPTUS GLOBULUS POLLEN\EUCALYPTUS GUM
     Indication: COUGH
     Dosage: 0.3 G, TID
     Route: 048
     Dates: start: 20181210
  15. RECOMBINANT HUMAN ERYTHROPOIETIN [Concomitant]
     Active Substance: ERYTHROPOIETIN
     Indication: NEPHROGENIC ANAEMIA
     Dosage: 3000 IU, 2X/WEEK
     Route: 042
     Dates: start: 20170918
  16. DIGOXIN. [Concomitant]
     Active Substance: DIGOXIN
     Indication: CARDIAC FAILURE CHRONIC
     Dosage: 0.125 MG, QD
     Route: 048
     Dates: start: 20181210

REACTIONS (1)
  - Lung infection [Recovered/Resolved]

NARRATIVE: CASE EVENT DATE: 20190128
